FAERS Safety Report 8994645 (Version 1)
Quarter: 2012Q4

REPORT INFORMATION
  Report Type: Spontaneous
  Country: US (occurrence: None)
  Receive Date: 20121228
  Receipt Date: 20121228
  Transmission Date: 20130627
  Serious: Yes (Hospitalization)
  Sender: FDA-Public Use
  Company Number: None

PATIENT
  Age: 52 Year
  Sex: Female
  Weight: 52.16 kg

DRUGS (5)
  1. PREGABALIN [Suspect]
     Indication: EPILEPSY
     Route: 048
     Dates: start: 20120812, end: 20121114
  2. PREGABALIN [Suspect]
     Indication: PARTIAL SEIZURES
     Route: 048
     Dates: start: 20120812, end: 20121114
  3. LEVETIRACETAM [Concomitant]
  4. CLONAZEPAM [Concomitant]
  5. DEPAKOTE [Concomitant]

REACTIONS (4)
  - Psychotic disorder [None]
  - Complex partial seizures [None]
  - Abnormal dreams [None]
  - Fear [None]
